FAERS Safety Report 9274688 (Version 1)
Quarter: 2013Q2

REPORT INFORMATION
  Report Type: Spontaneous
  Country: HU (occurrence: None)
  Receive Date: 20130429
  Receipt Date: 20130429
  Transmission Date: 20140414
  Serious: Yes (Hospitalization, Other)
  Sender: FDA-Public Use
  Company Number: 2013P1004934

PATIENT
  Age: 56 Year
  Sex: Female

DRUGS (1)
  1. CHLOROQUINE [Suspect]
     Indication: MIXED CONNECTIVE TISSUE DISEASE
     Dates: start: 200908, end: 201105

REACTIONS (3)
  - Cardiotoxicity [None]
  - Cardiomyopathy [None]
  - Atrioventricular block complete [None]
